FAERS Safety Report 8493837-3 (Version None)
Quarter: 2012Q3

REPORT INFORMATION
  Report Type: 
  Country: None (occurrence: None)
  Receive Date: 20120706
  Receipt Date: 20120703
  Transmission Date: 20120928
  Serious: Yes (Other)
  Sender: FDA-Public Use
  Company Number: GXKR2012DE001971

PATIENT
  Age: 59 Year
  Sex: Male
  Weight: 85 kg

DRUGS (3)
  1. BICALUTAMID 1A PHARMA [Interacting]
     Dosage: 50 MG, QD
     Route: 048
     Dates: start: 20120613
  2. OMEPRAZOLE [Interacting]
     Dosage: 20 MG, QD
     Route: 048
     Dates: start: 20050101, end: 20120530
  3. BICALUTAMID 1A PHARMA [Suspect]
     Indication: PROSTATE CANCER METASTATIC
     Dosage: 150 MG, QD
     Route: 048
     Dates: start: 20120405, end: 20120612

REACTIONS (2)
  - BLOOD CHROMOGRANIN A INCREASED [None]
  - DRUG INTERACTION [None]
